FAERS Safety Report 9887462 (Version 1)
Quarter: 2014Q1

REPORT INFORMATION
  Report Type: Spontaneous
  Country: US (occurrence: None)
  Receive Date: 20140207
  Receipt Date: 20140207
  Transmission Date: 20141002
  Serious: Yes (Hospitalization)
  Sender: FDA-Public Use
  Company Number: None

PATIENT
  Age: 20 Year
  Sex: Female
  Weight: 47 kg

DRUGS (4)
  1. METHIMAZOLE [Suspect]
     Indication: BASEDOW^S DISEASE
     Route: 048
     Dates: start: 20131220, end: 20140204
  2. CLONAZEPAM [Concomitant]
  3. KEPPRA [Concomitant]
  4. OXYBUTININE [Concomitant]

REACTIONS (8)
  - Pyrexia [None]
  - Headache [None]
  - Oropharyngeal pain [None]
  - Leukopenia [None]
  - Neutropenia [None]
  - Haemoglobin decreased [None]
  - Haematocrit decreased [None]
  - Platelet count decreased [None]
